FAERS Safety Report 20454628 (Version 1)
Quarter: 2022Q1

REPORT INFORMATION
  Report Type: Spontaneous
  Country: US (occurrence: None)
  Receive Date: 20220210
  Receipt Date: 20220210
  Transmission Date: 20220423
  Serious: Yes (Hospitalization)
  Sender: FDA-Public Use
  Company Number: None

PATIENT
  Age: 70 Year
  Sex: Female
  Weight: 75.3 kg

DRUGS (2)
  1. GEMCITABINE HYDROCHLORIDE [Suspect]
     Active Substance: GEMCITABINE HYDROCHLORIDE
     Dates: end: 20220120
  2. PACLITAXEL [Suspect]
     Active Substance: PACLITAXEL
     Dates: end: 20220120

REACTIONS (13)
  - Pain in extremity [None]
  - Peripheral coldness [None]
  - Erythema [None]
  - Gait inability [None]
  - Hypoaesthesia [None]
  - Product administration error [None]
  - Extra dose administered [None]
  - Thrombocytopenia [None]
  - Pulmonary embolism [None]
  - Vascular procedure complication [None]
  - Vascular test [None]
  - Pain [None]
  - Inadequate analgesia [None]

NARRATIVE: CASE EVENT DATE: 20220131
